FAERS Safety Report 7008739-9 (Version None)
Quarter: 2010Q3

REPORT INFORMATION
  Report Type: 
  Country: None (occurrence: None)
  Receive Date: 20100921
  Receipt Date: 20100913
  Transmission Date: 20110219
  Serious: Yes (Hospitalization)
  Sender: FDA-Public Use
  Company Number: 2009SP040096

PATIENT
  Age: 66 Year
  Sex: Female

DRUGS (6)
  1. PEGINTERFERON ALFA-2B [Suspect]
     Indication: HEPATITIS C
     Dosage: QW;SC, 60 MCG;QW;SC
     Route: 058
     Dates: start: 20080825, end: 20081116
  2. PEGINTERFERON ALFA-2B [Suspect]
     Indication: HEPATITIS C
     Dosage: QW;SC, 60 MCG;QW;SC
     Route: 058
     Dates: start: 20081117, end: 20090720
  3. RIBAVIRIN [Suspect]
     Indication: HEPATITIS C
     Dosage: QD; PO 1000 MG;QD; PO
     Route: 048
     Dates: start: 20080825, end: 20090111
  4. RIBAVIRIN [Suspect]
     Indication: HEPATITIS C
     Dosage: QD; PO 1000 MG;QD; PO
     Route: 048
     Dates: start: 20090112, end: 20090720
  5. BLINDED ELTROMBOPAG (ELTROMBOPAG) [Suspect]
     Indication: THROMBOCYTOPENIA
     Dosage: ;QD; PO 100 MG;QD; PO
     Route: 048
     Dates: start: 20080825, end: 20081020
  6. BLINDED ELTROMBOPAG (ELTROMBOPAG) [Suspect]
     Indication: THROMBOCYTOPENIA
     Dosage: ;QD; PO 100 MG;QD; PO
     Route: 048
     Dates: start: 20081021, end: 20090720

REACTIONS (4)
  - ACTINOMYCOTIC PULMONARY INFECTION [None]
  - AMYLOIDOSIS [None]
  - ATELECTASIS [None]
  - PNEUMONIA [None]
